FAERS Safety Report 22996807 (Version 2)
Quarter: 2023Q4

REPORT INFORMATION
  Report Type: Spontaneous
  Country: JP (occurrence: JP)
  Receive Date: 20230928
  Receipt Date: 20231006
  Transmission Date: 20240109
  Serious: Yes (Hospitalization)
  Sender: FDA-Public Use
  Company Number: JP-BoehringerIngelheim-2023-BI-263784

PATIENT
  Age: 78 Year
  Sex: Female

DRUGS (2)
  1. OFEV [Suspect]
     Active Substance: NINTEDANIB
     Indication: Idiopathic pulmonary fibrosis
     Route: 048
  2. OFEV [Suspect]
     Active Substance: NINTEDANIB
     Route: 048

REACTIONS (2)
  - Nephrotic syndrome [Recovered/Resolved]
  - Thrombotic microangiopathy [Recovered/Resolved]
